FAERS Safety Report 7949119-9 (Version None)
Quarter: 2011Q4

REPORT INFORMATION
  Report Type: 
  Country: None (occurrence: None)
  Receive Date: 20111130
  Receipt Date: 20111122
  Transmission Date: 20120403
  Serious: Yes (Other)
  Sender: FDA-Public Use
  Company Number: AU-NOVOPROD-340073

PATIENT

DRUGS (4)
  1. LEVEMIR [Suspect]
     Indication: TYPE 1 DIABETES MELLITUS
     Dosage: 50 U, QD
     Route: 065
     Dates: start: 20090101
  2. LEVEMIR [Suspect]
     Dosage: 40 U, QD
     Route: 065
  3. NOVORAPID [Concomitant]
     Indication: TYPE 1 DIABETES MELLITUS
  4. LEVEMIR [Suspect]
     Dosage: 45 U, QD
     Route: 065

REACTIONS (1)
  - LOSS OF CONSCIOUSNESS [None]
